FAERS Safety Report 5574672-2 (Version None)
Quarter: 2007Q4

REPORT INFORMATION
  Report Type: 
  Country: None (occurrence: None)
  Receive Date: 20071227
  Receipt Date: 20071221
  Transmission Date: 20080405
  Serious: Yes (Hospitalization)
  Sender: FDA-Public Use
  Company Number: FR-WYE-H01866107

PATIENT
  Sex: Female

DRUGS (4)
  1. CORDARONE [Suspect]
     Indication: ATRIAL FIBRILLATION
     Route: 048
     Dates: start: 20050815, end: 20050903
  2. HYPERIUM [Concomitant]
     Dosage: UNSPECIFIED
     Route: 048
  3. HEPARIN-FRACTION [Concomitant]
     Indication: ATRIAL FIBRILLATION
     Dosage: UNSPECIFIED
     Route: 042
     Dates: start: 20050815
  4. FOZITEC [Suspect]
     Indication: HYPERTENSION
     Dates: end: 20050903

REACTIONS (4)
  - CONDITION AGGRAVATED [None]
  - ELECTROCARDIOGRAM QT PROLONGED [None]
  - HYPERTENSION [None]
  - HYPOKALAEMIA [None]
